FAERS Safety Report 10376125 (Version 1)
Quarter: 2014Q3

REPORT INFORMATION
  Report Type: Spontaneous
  Country: US (occurrence: US)
  Receive Date: 20140811
  Receipt Date: 20140811
  Transmission Date: 20150326
  Serious: Yes (Hospitalization)
  Sender: FDA-Public Use
  Company Number: US-GLAXOSMITHKLINE-A1084583A

PATIENT
  Sex: Male

DRUGS (1)
  1. AVANDIA [Suspect]
     Active Substance: ROSIGLITAZONE MALEATE
     Indication: DIABETES MELLITUS
     Dosage: 8MG PER DAY
     Route: 048
     Dates: start: 20021008, end: 20070628

REACTIONS (5)
  - Arrhythmia [Unknown]
  - Pleural effusion [Unknown]
  - Cardiac failure [Unknown]
  - Coronary artery disease [Unknown]
  - Atrioventricular block complete [Unknown]
